FAERS Safety Report 18142832 (Version 2)
Quarter: 2022Q2

REPORT INFORMATION
  Report Type: Spontaneous
  Country: US (occurrence: US)
  Receive Date: 20200813
  Receipt Date: 20220612
  Transmission Date: 20220721
  Serious: Yes (Other)
  Sender: FDA-Public Use
  Company Number: US-SAARTEMIS-SAC202008100199

PATIENT
  Age: 52 Year
  Sex: Male

DRUGS (1)
  1. ZANTAC [Suspect]
     Active Substance: RANITIDINE HYDROCHLORIDE
     Indication: Dyspepsia
     Dosage: 300 MG, FREQUENCY: OTHER
     Dates: start: 200001, end: 201907

REACTIONS (1)
  - Colorectal cancer [Recovered/Resolved]

NARRATIVE: CASE EVENT DATE: 20150201
